FAERS Safety Report 8506187-3 (Version None)
Quarter: 2012Q3

REPORT INFORMATION
  Report Type: 
  Country: None (occurrence: None)
  Receive Date: 20120712
  Receipt Date: 20120702
  Transmission Date: 20120928
  Serious: Yes (Hospitalization)
  Sender: FDA-Public Use
  Company Number: US-ELI_LILLY_AND_COMPANY-US201207001568

PATIENT
  Sex: Female

DRUGS (12)
  1. FORTEO [Suspect]
     Dosage: 20 UG, QD
     Dates: start: 20120501
  2. LIPITOR [Concomitant]
     Dosage: UNK
  3. FORTEO [Suspect]
     Indication: OSTEOPOROSIS
     Dosage: 20 UG, QD
     Dates: start: 20120501
  4. SYNTHROID [Concomitant]
     Dosage: 100 MG, UNK
  5. WARFARIN SODIUM [Concomitant]
     Dosage: UNK
  6. CALCIUM [Concomitant]
     Dosage: UNK
  7. ASPIRIN [Concomitant]
     Dosage: 81 MG, QD
  8. OMEPRAZOLE [Concomitant]
     Indication: DYSPEPSIA
     Dosage: UNK
  9. HYDROCODONE BITARTRATE [Concomitant]
     Indication: PAIN
     Dosage: UNK, BID
  10. HYDROCHLOROTHIAZIDE [Concomitant]
     Dosage: UNK
  11. SIMVASTATIN [Concomitant]
     Indication: BLOOD CHOLESTEROL
     Dosage: UNK
  12. POTASSIUM CHLORIDE [Concomitant]
     Dosage: UNK

REACTIONS (9)
  - MYALGIA [None]
  - MALAISE [None]
  - HIATUS HERNIA [None]
  - ATRIAL FIBRILLATION [None]
  - ASTHENIA [None]
  - MUSCULAR WEAKNESS [None]
  - GAIT DISTURBANCE [None]
  - MUSCLE DISORDER [None]
  - BLOOD THYROID STIMULATING HORMONE INCREASED [None]
